FAERS Safety Report 8054629 (Version 2)
Quarter: 2013Q4

REPORT INFORMATION
  Report Type: Spontaneous
  Country: US (occurrence: US)
  Receive Date: 20110726
  Receipt Date: 20131107
  Transmission Date: 20140711
  Serious: Yes (Other)
  Sender: FDA-Public Use
  Company Number: US-ROCHE-752052

PATIENT
  Age: 25 Year
  Sex: Male
  Weight: 76.2 kg

DRUGS (3)
  1. ACCUTANE [Suspect]
     Indication: ACNE
     Route: 065
     Dates: start: 19850101, end: 19860101
  2. ACCUTANE [Suspect]
     Route: 065
     Dates: start: 19860429, end: 19860723
  3. ACCUTANE [Suspect]
     Route: 065

REACTIONS (12)
  - Colitis ulcerative [Unknown]
  - Gastrointestinal injury [Unknown]
  - Depression [Unknown]
  - Crohn^s disease [Unknown]
  - Inflammatory bowel disease [Unknown]
  - Anal fistula [Recovered/Resolved]
  - Perirectal abscess [Unknown]
  - Rectal polyp [Unknown]
  - Irritable bowel syndrome [Unknown]
  - Vision blurred [Unknown]
  - Epistaxis [Unknown]
  - Dry eye [Unknown]
